FAERS Safety Report 4517518-3 (Version None)
Quarter: 2004Q4

REPORT INFORMATION
  Report Type: 
  Country: None (occurrence: None)
  Receive Date: 20041027
  Receipt Date: 20040726
  Transmission Date: 20050328
  Serious: No
  Sender: FDA-Public Use
  Company Number: US085057

PATIENT
  Sex: Male

DRUGS (10)
  1. SENSIPAR [Suspect]
     Indication: HYPERPARATHYROIDISM SECONDARY
     Dosage: 30 MG, 1 IN 1 DAYS, PO
     Route: 048
     Dates: start: 20040601
  2. LOSARTAN POTASSIUM [Concomitant]
  3. ATENOLOL [Concomitant]
  4. RANITIDINE HYDROCHLORIDE [Concomitant]
  5. SEVELAMER HCL [Concomitant]
  6. SIMVASTATIN [Concomitant]
  7. DIATX [Concomitant]
  8. ACETYLSALICYLIC ACID [Concomitant]
  9. PHOSLO [Concomitant]
  10. DOCUSATE SODIUM [Concomitant]

REACTIONS (1)
  - BLOOD PRESSURE INCREASED [None]
